FAERS Safety Report 9357945 (Version 1)
Quarter: 2013Q2

REPORT INFORMATION
  Report Type: Spontaneous
  Country: US (occurrence: None)
  Receive Date: 20130619
  Receipt Date: 20130619
  Transmission Date: 20140414
  Serious: Yes (Life-Threatening, Hospitalization, Disabling)
  Sender: FDA-Public Use
  Company Number: None

PATIENT
  Age: 45 None
  Sex: Female
  Weight: 61.24 kg

DRUGS (11)
  1. DEPO-MEDROL [Suspect]
     Indication: INTERVERTEBRAL DISC DEGENERATION
     Dosage: 3 INJECTIONS
     Dates: start: 200411, end: 200505
  2. DEPO-MEDROL [Suspect]
     Indication: PAIN
     Dosage: 3 INJECTIONS
     Dates: start: 200411, end: 200505
  3. MORPHINE [Concomitant]
  4. ROXICODONE [Concomitant]
  5. VIT D 2 [Concomitant]
  6. PRILOSEC [Concomitant]
  7. XANAX [Concomitant]
  8. FLEXERIL [Concomitant]
  9. PRISTIQ [Concomitant]
  10. VIT D [Concomitant]
  11. LACTOSE ENZYMES [Concomitant]

REACTIONS (5)
  - Arachnoiditis [None]
  - Anaesthetic complication [None]
  - Impaired work ability [None]
  - Pain [None]
  - Suicidal ideation [None]
